FAERS Safety Report 7254963-X (Version None)
Quarter: 2011Q1

REPORT INFORMATION
  Report Type: 
  Country: None (occurrence: None)
  Receive Date: 20110129
  Receipt Date: 20100208
  Transmission Date: 20110831
  Serious: No
  Sender: FDA-Public Use
  Company Number: US-ABBOTT-10P-163-0624791-00

PATIENT
  Sex: Female

DRUGS (1)
  1. HUMIRA [Suspect]
     Indication: PSORIASIS
     Dates: start: 20081015, end: 20090406

REACTIONS (8)
  - ANAEMIA [None]
  - STOMATITIS [None]
  - EAR PAIN [None]
  - MUSCLE SPASMS [None]
  - NASAL CONGESTION [None]
  - TREMOR [None]
  - UPPER RESPIRATORY TRACT INFECTION [None]
  - NASOPHARYNGITIS [None]
